FAERS Safety Report 6520025-X (Version None)
Quarter: 2009Q4

REPORT INFORMATION
  Report Type: 
  Country: None (occurrence: None)
  Receive Date: 20091229
  Receipt Date: 20091215
  Transmission Date: 20100525
  Serious: No
  Sender: FDA-Public Use
  Company Number: JP-ROCHE-676785

PATIENT

DRUGS (2)
  1. TAMIFLU [Suspect]
     Indication: INFLUENZA
     Route: 048
  2. TAMIFLU [Suspect]
     Route: 048

REACTIONS (2)
  - ACCIDENTAL OVERDOSE [None]
  - NAUSEA [None]
